FAERS Safety Report 8507171 (Version 4)
Quarter: 2012Q4

REPORT INFORMATION
  Report Type: 
  Country: US (occurrence: US)
  Receive Date: 20120412
  Receipt Date: 20120919
  Transmission Date: 20130627
  Serious: Yes (Other)
  Sender: FDA-Public Use
  Company Number: US-ASTRAZENECA-2011SE19302

PATIENT
  Age: 58 Year
  Sex: Female
  Weight: 87.1 kg

DRUGS (5)
  1. NEXIUM [Suspect]
     Route: 048
  2. ARIMIDEX [Suspect]
     Indication: BREAST CANCER
     Route: 048
     Dates: start: 201102
  3. KEFLEX [Concomitant]
     Indication: URINARY TRACT INFECTION
  4. MICROBAN [Concomitant]
     Indication: URINARY TRACT INFECTION
  5. AMOXICILLIN [Concomitant]
     Indication: PAIN

REACTIONS (5)
  - Breast cancer [Unknown]
  - Dyspepsia [Unknown]
  - Urinary tract infection [Recovering/Resolving]
  - Pain [Unknown]
  - Drug dose omission [Unknown]
